FAERS Safety Report 21648051 (Version 2)
Quarter: 2023Q1

REPORT INFORMATION
  Report Type: Report from Study
  Country: US (occurrence: US)
  Receive Date: 20221128
  Receipt Date: 20230208
  Transmission Date: 20230418
  Serious: Yes (Other)
  Sender: FDA-Public Use
  Company Number: US-ABBVIE-4170683

PATIENT
  Age: 66 Year
  Sex: Female

DRUGS (8)
  1. HUMIRA [Suspect]
     Active Substance: ADALIMUMAB
     Indication: Crohn^s disease
     Dosage: CF?DRUG END DATE 2022
     Route: 058
     Dates: start: 20220526
  2. HUMIRA [Suspect]
     Active Substance: ADALIMUMAB
     Dosage: CF
     Route: 058
  3. PAXLOVID [Suspect]
     Active Substance: NIRMATRELVIR\RITONAVIR
     Indication: Product used for unknown indication
     Route: 065
     Dates: start: 202210
  4. PFIZER-BIONTECH COVID-19 VACCINE [Suspect]
     Active Substance: TOZINAMERAN
     Indication: COVID-19 immunisation
     Dosage: 1ST DOSE?FREQUENCY: ONCE
     Route: 030
     Dates: start: 20210318, end: 20210318
  5. PFIZER-BIONTECH COVID-19 VACCINE [Suspect]
     Active Substance: TOZINAMERAN
     Indication: COVID-19 immunisation
     Dosage: 2ND DOSE?FREQUENCY: ONCE
     Route: 030
     Dates: start: 20210408, end: 20210408
  6. PFIZER-BIONTECH COVID-19 VACCINE [Suspect]
     Active Substance: TOZINAMERAN
     Indication: COVID-19 immunisation
     Dosage: 3RD DOSE (BOOSTER)?FREQUENCY: ONCE
     Route: 030
     Dates: start: 20210820, end: 20210820
  7. PFIZER-BIONTECH COVID-19 VACCINE [Suspect]
     Active Substance: TOZINAMERAN
     Indication: COVID-19 immunisation
     Dosage: BOOSTER ?FREQUENCY: ONCE
     Route: 030
     Dates: start: 20220418, end: 20220418
  8. PFIZER-BIONTECH COVID-19 VACCINE [Suspect]
     Active Substance: TOZINAMERAN
     Indication: COVID-19 immunisation
     Dosage: BOOSTER ?FREQUENCY: ONCE
     Route: 030
     Dates: start: 20221007, end: 20221007

REACTIONS (12)
  - Adrenal gland cancer [Unknown]
  - Gastric disorder [Not Recovered/Not Resolved]
  - COVID-19 [Recovered/Resolved]
  - Breast mass [Recovered/Resolved]
  - Sinusitis [Recovering/Resolving]
  - Crohn^s disease [Unknown]
  - Viral infection [Recovering/Resolving]
  - Breast cyst [Recovered/Resolved]
  - Vertigo [Recovering/Resolving]
  - Pain [Unknown]
  - Weight increased [Recovering/Resolving]
  - Osteoporosis [Unknown]

NARRATIVE: CASE EVENT DATE: 20221001
